FAERS Safety Report 7104735-1 (Version None)
Quarter: 2010Q4

REPORT INFORMATION
  Report Type: 
  Country: None (occurrence: None)
  Receive Date: 20101116
  Receipt Date: 20101103
  Transmission Date: 20110411
  Serious: Yes (Other)
  Sender: FDA-Public Use
  Company Number: FR-JNJFOC-20100906277

PATIENT
  Sex: Female

DRUGS (2)
  1. REMICADE [Suspect]
     Indication: ILL-DEFINED DISORDER
     Route: 042
  2. ADALIMUMAB [Suspect]
     Indication: ILL-DEFINED DISORDER

REACTIONS (1)
  - SYSTEMIC LUPUS ERYTHEMATOSUS [None]
